FAERS Safety Report 7736902-8 (Version None)
Quarter: 2011Q3

REPORT INFORMATION
  Report Type: 
  Country: None (occurrence: None)
  Receive Date: 20110908
  Receipt Date: 20110831
  Transmission Date: 20111222
  Serious: Yes (Hospitalization)
  Sender: FDA-Public Use
  Company Number: FR-SANOFI-AVENTIS-2011SA055794

PATIENT
  Age: 22 Year
  Sex: Female

DRUGS (5)
  1. LANTUS [Suspect]
     Indication: TYPE 1 DIABETES MELLITUS
     Route: 058
     Dates: start: 20090101
  2. MORPHINE [Concomitant]
     Route: 065
     Dates: start: 20110401
  3. ACUPAN [Concomitant]
     Route: 065
     Dates: start: 20110401, end: 20110408
  4. NOVORAPID [Concomitant]
     Indication: TYPE 1 DIABETES MELLITUS
     Route: 058
     Dates: start: 20090101
  5. SPASFON [Concomitant]
     Route: 065
     Dates: start: 20110401

REACTIONS (2)
  - LYMPHOBLASTOSIS [None]
  - NEUTROPENIA [None]
